FAERS Safety Report 10197844 (Version 1)
Quarter: 2014Q2

REPORT INFORMATION
  Report Type: Spontaneous
  Country: US (occurrence: US)
  Receive Date: 20140527
  Receipt Date: 20140527
  Transmission Date: 20141212
  Serious: Yes (Other)
  Sender: FDA-Public Use
  Company Number: US-PFIZER INC-2014140366

PATIENT
  Sex: Female

DRUGS (2)
  1. ROBITUSSIN COUGH AND CHEST CONGESTION DM [Suspect]
     Indication: COUGH
     Dosage: UNK, EVERY 4HRS
     Dates: start: 201405
  2. ROBITUSSIN COUGH AND CHEST CONGESTION DM [Suspect]
     Indication: RESPIRATORY TRACT CONGESTION

REACTIONS (7)
  - Aphagia [Unknown]
  - Ageusia [Unknown]
  - Asthenia [Unknown]
  - Cardiac disorder [Unknown]
  - Lung disorder [Unknown]
  - Decreased appetite [Unknown]
  - Drug ineffective [Unknown]
